FAERS Safety Report 6008172-2 (Version None)
Quarter: 2008Q4

REPORT INFORMATION
  Report Type: 
  Country: None (occurrence: None)
  Receive Date: 20081217
  Receipt Date: 20080729
  Transmission Date: 20090506
  Serious: No
  Sender: FDA-Public Use
  Company Number: US-ASTRAZENECA-2008UW14898

PATIENT
  Age: 52 Year
  Sex: Female
  Weight: 68 kg

DRUGS (2)
  1. CRESTOR [Suspect]
     Indication: BLOOD CHOLESTEROL INCREASED
     Route: 048
     Dates: start: 20071101
  2. CALCIUM WITH VITAMIN D [Concomitant]

REACTIONS (1)
  - DENTAL PLAQUE [None]
